FAERS Safety Report 10644507 (Version 2)
Quarter: 2014Q4

REPORT INFORMATION
  Report Type: Report from Study
  Country: US (occurrence: US)
  Receive Date: 20141210
  Receipt Date: 20141210
  Transmission Date: 20150529
  Serious: Yes (Hospitalization, Other)
  Sender: FDA-Public Use
  Company Number: US-ABBVIE-14K-163-1315216-00

PATIENT
  Age: 74 Year
  Sex: Male

DRUGS (1)
  1. HUMIRA [Suspect]
     Active Substance: ADALIMUMAB
     Indication: RHEUMATOID ARTHRITIS
     Route: 058
     Dates: start: 20141024, end: 20141024

REACTIONS (9)
  - Staphylococcal infection [Unknown]
  - Anaemia [Not Recovered/Not Resolved]
  - Malaise [Unknown]
  - White blood cell count increased [Unknown]
  - Dehydration [Unknown]
  - Sepsis [Unknown]
  - Arthralgia [Not Recovered/Not Resolved]
  - Acute kidney injury [Unknown]
  - Peripheral swelling [Not Recovered/Not Resolved]

NARRATIVE: CASE EVENT DATE: 2014
